FAERS Safety Report 14740486 (Version 2)
Quarter: 2018Q2

REPORT INFORMATION
  Report Type: Spontaneous
  Country: CA (occurrence: CA)
  Receive Date: 20180410
  Receipt Date: 20180422
  Transmission Date: 20180711
  Serious: Yes (Hospitalization, Other)
  Sender: FDA-Public Use
  Company Number: CA-APOTEX-2018AP009658

PATIENT
  Age: 14 Year
  Sex: Male

DRUGS (8)
  1. PREDNISONE. [Suspect]
     Active Substance: PREDNISONE
     Indication: HODGKIN^S DISEASE
     Dosage: 75 MG, QD
     Route: 065
  2. BENZTROPINE. [Suspect]
     Active Substance: BENZTROPINE
     Indication: EXTRAPYRAMIDAL DISORDER
     Dosage: UNK
     Route: 065
  3. VINCRISTINE [Concomitant]
     Active Substance: VINCRISTINE
     Indication: PRODUCT USED FOR UNKNOWN INDICATION
     Dosage: UNK
     Route: 065
  4. CYCLOPHOSPHAMIDE. [Concomitant]
     Active Substance: CYCLOPHOSPHAMIDE
     Indication: PRODUCT USED FOR UNKNOWN INDICATION
     Dosage: UNK
     Route: 065
  5. DAPSONE. [Concomitant]
     Active Substance: DAPSONE
     Indication: PRODUCT USED FOR UNKNOWN INDICATION
     Dosage: UNK
     Route: 065
  6. HALOPERIDOL. [Suspect]
     Active Substance: HALOPERIDOL
     Indication: PRODUCT USED FOR UNKNOWN INDICATION
     Dosage: UNK
     Route: 065
  7. PROCARBAZINE [Suspect]
     Active Substance: PROCARBAZINE
     Indication: PRODUCT USED FOR UNKNOWN INDICATION
     Dosage: 100 MG/M2, QD
     Route: 065
  8. OLANZAPINE. [Concomitant]
     Active Substance: OLANZAPINE
     Indication: PRODUCT USED FOR UNKNOWN INDICATION
     Dosage: UNK
     Route: 065

REACTIONS (5)
  - Extrapyramidal disorder [Unknown]
  - Bipolar disorder [Recovering/Resolving]
  - Mania [Recovering/Resolving]
  - Psychotic disorder [Recovering/Resolving]
  - Vision blurred [Recovered/Resolved]
